FAERS Safety Report 9437355 (Version 1)
Quarter: 2013Q3

REPORT INFORMATION
  Report Type: Spontaneous
  Country: FR (occurrence: FR)
  Receive Date: 20130802
  Receipt Date: 20130802
  Transmission Date: 20140515
  Serious: Yes (Hospitalization)
  Sender: FDA-Public Use
  Company Number: FR-SANOFI-AVENTIS-2013SA075210

PATIENT
  Age: 81 Year
  Sex: Female
  Weight: 87 kg

DRUGS (15)
  1. LOVENOX [Suspect]
     Indication: ENDARTERECTOMY
     Route: 058
     Dates: start: 20130627, end: 20130704
  2. XARELTO [Suspect]
     Indication: ATRIAL FIBRILLATION
     Dosage: STRENGTH : 15 MG
     Route: 048
     Dates: start: 20130704, end: 20130704
  3. VOLTARENE [Suspect]
     Indication: PAIN
     Dosage: STRENGTH : 50 MG
     Route: 048
     Dates: start: 20130704, end: 20130705
  4. PRADAXA [Concomitant]
     Dates: start: 2011, end: 201306
  5. BISOPROLOL [Concomitant]
  6. CONTRAMAL [Concomitant]
     Dates: end: 20130704
  7. DIFFU K [Concomitant]
  8. RENITEC [Concomitant]
  9. GLUCOPHAGE [Concomitant]
  10. PARACETAMOL [Concomitant]
  11. INEXIUM [Concomitant]
  12. LEVOTHYROX [Concomitant]
  13. TAHOR [Concomitant]
  14. MOTILIUM [Concomitant]
  15. NOVORAPID [Concomitant]

REACTIONS (2)
  - Median nerve injury [Unknown]
  - Haematoma [Unknown]
